FAERS Safety Report 8820282 (Version 1)
Quarter: 2012Q4

REPORT INFORMATION
  Report Type: 
  Country: US (occurrence: US)
  Receive Date: 20121002
  Receipt Date: 20121002
  Transmission Date: 20130627
  Serious: No
  Sender: FDA-Public Use
  Company Number: US-BIOGENIDEC-2012BI039848

PATIENT
  Sex: Female

DRUGS (1)
  1. AVONEX [Suspect]
     Indication: MULTIPLE SCLEROSIS
     Route: 030
     Dates: start: 20120824

REACTIONS (4)
  - Flatulence [Recovered/Resolved]
  - Renal pain [Recovered/Resolved]
  - Tremor [Recovered/Resolved]
  - Influenza like illness [Not Recovered/Not Resolved]
